FAERS Safety Report 5231192-2 (Version None)
Quarter: 2007Q1

REPORT INFORMATION
  Report Type: 
  Country: None (occurrence: None)
  Receive Date: 20070206
  Receipt Date: 20070201
  Transmission Date: 20070707
  Serious: Yes (Hospitalization)
  Sender: FDA-Public Use
  Company Number: 2007PK00173

PATIENT
  Age: 362 Month
  Sex: Male
  Weight: 84 kg

DRUGS (1)
  1. SEROQUEL [Suspect]
     Route: 048
     Dates: start: 20000101

REACTIONS (3)
  - ALCOHOL USE [None]
  - BONE DISORDER [None]
  - BONE MARROW OEDEMA [None]
